FAERS Safety Report 9539353 (Version 2)
Quarter: 2013Q4

REPORT INFORMATION
  Report Type: Spontaneous
  Country: ZA (occurrence: ZA)
  Receive Date: 20130920
  Receipt Date: 20131107
  Transmission Date: 20140711
  Serious: Yes (Hospitalization, Other)
  Sender: FDA-Public Use
  Company Number: PHHY2013ZA104767

PATIENT
  Age: 72 Year
  Sex: Female

DRUGS (3)
  1. ACLASTA [Suspect]
     Indication: OSTEOPOROSIS
     Dosage: 5 MG, ONCE INFUSION
     Route: 042
     Dates: start: 20130731
  2. SIMVASTATIN [Concomitant]
     Indication: DYSLIPIDAEMIA
     Dosage: 40 MG, UNK
     Route: 048
  3. INDERAL [Concomitant]
     Indication: MITRAL VALVE DISEASE
     Dosage: 80 MG, UNK
     Route: 048

REACTIONS (1)
  - Psychotic disorder [Unknown]
